FAERS Safety Report 6500315-7 (Version None)
Quarter: 2009Q4

REPORT INFORMATION
  Report Type: 
  Country: None (occurrence: None)
  Receive Date: 20091216
  Receipt Date: 20091208
  Transmission Date: 20100525
  Serious: Yes (Hospitalization)
  Sender: FDA-Public Use
  Company Number: FR-ROCHE-674131

PATIENT
  Sex: Female
  Weight: 9.6 kg

DRUGS (7)
  1. TAMIFLU [Suspect]
     Route: 048
     Dates: start: 20091128, end: 20091201
  2. TEGRETOL [Concomitant]
  3. ASPEGIC 1000 [Concomitant]
     Dosage: DOSE: 100
  4. PERFALGAN [Concomitant]
     Dosage: 150 EVERY 6 HOURS
  5. VALIUM [Concomitant]
  6. GARDENAL [Concomitant]
  7. DOLIPRANE [Concomitant]

REACTIONS (2)
  - CYTOLYTIC HEPATITIS [None]
  - HEPATIC FAILURE [None]
